FAERS Safety Report 6937470-0 (Version None)
Quarter: 2010Q3

REPORT INFORMATION
  Report Type: 
  Country: None (occurrence: None)
  Receive Date: 20100823
  Receipt Date: 20100823
  Transmission Date: 20110219
  Serious: Yes (Other)
  Sender: FDA-Public Use
  Company Number: None

PATIENT
  Sex: Male
  Weight: 85.2762 kg

DRUGS (2)
  1. TREANDA [Suspect]
     Indication: CHRONIC LYMPHOCYTIC LEUKAEMIA
     Dosage: 144MG Q28 DAYS IV DRIP  (6 CYCLES)
     Route: 041
     Dates: start: 20100525
  2. TREANDA [Suspect]

REACTIONS (2)
  - INSOMNIA [None]
  - RASH ERYTHEMATOUS [None]
